FAERS Safety Report 11386149 (Version 1)
Quarter: 2015Q3

REPORT INFORMATION
  Report Type: Spontaneous
  Country: US (occurrence: US)
  Receive Date: 20150817
  Receipt Date: 20150817
  Transmission Date: 20151125
  Serious: No
  Sender: FDA-Public Use
  Company Number: US-009507513-1506USA001523

PATIENT
  Sex: Female
  Weight: 113.38 kg

DRUGS (1)
  1. NEXPLANON [Suspect]
     Active Substance: ETONOGESTREL
     Dosage: 1 DF, ONCE EVERY THREE YEARS
     Route: 059
     Dates: start: 2012

REACTIONS (5)
  - Product quality issue [Unknown]
  - Device breakage [Unknown]
  - Device difficult to use [Unknown]
  - No adverse event [Unknown]
  - Complication of device removal [Unknown]
